FAERS Safety Report 24950806 (Version 1)
Quarter: 2025Q1

REPORT INFORMATION
  Report Type: Spontaneous
  Country: US (occurrence: None)
  Receive Date: 20250207
  Receipt Date: 20250207
  Transmission Date: 20250408
  Serious: Yes (Hospitalization)
  Sender: FDA-CTU
  Company Number: None

PATIENT
  Age: 48 Year
  Sex: Male
  Weight: 114.9 kg

DRUGS (1)
  1. ANASTROZOLE\TESTOSTERONE [Suspect]
     Active Substance: ANASTROZOLE\TESTOSTERONE

REACTIONS (7)
  - Injection site inflammation [None]
  - Injection site infection [None]
  - Wrong technique in product usage process [None]
  - Product solubility abnormal [None]
  - Product compounding quality issue [None]
  - Product sterility issue [None]
  - Product closure removal difficult [None]

NARRATIVE: CASE EVENT DATE: 20250204
